FAERS Safety Report 13049676 (Version 5)
Quarter: 2017Q3

REPORT INFORMATION
  Report Type: Spontaneous
  Country: JP (occurrence: JP)
  Receive Date: 20161221
  Receipt Date: 20170720
  Transmission Date: 20171127
  Serious: Yes (Hospitalization, Other)
  Sender: FDA-Public Use
  Company Number: JP-CELGENEUS-JPN-2016122297

PATIENT
  Age: 80 Year
  Sex: Female

DRUGS (15)
  1. REVLIMID [Suspect]
     Active Substance: LENALIDOMIDE
     Dosage: 10 MG
     Route: 048
     Dates: start: 20161011, end: 20161031
  2. REVLIMID [Suspect]
     Active Substance: LENALIDOMIDE
     Indication: PLASMA CELL MYELOMA
     Dosage: 10 MG
     Route: 048
     Dates: start: 20160908, end: 20160928
  3. CEFTRIAXONE SODIUM. [Concomitant]
     Active Substance: CEFTRIAXONE SODIUM
     Indication: PRODUCT USED FOR UNKNOWN INDICATION
     Route: 065
     Dates: start: 20170411
  4. ASPARA K [Concomitant]
     Active Substance: POTASSIUM ASPARTATE
     Dosage: 900 MILLIGRAM
     Route: 048
     Dates: start: 20161010
  5. BAYASPIRIN [Concomitant]
     Active Substance: ASPIRIN
     Indication: THROMBOSIS PROPHYLAXIS
     Dosage: 100 MILLIGRAM
     Route: 048
     Dates: start: 20160920, end: 20161010
  6. MERCAZOLE [Concomitant]
     Active Substance: CARBIMAZOLE
     Indication: HYPERTHYROIDISM
     Dosage: 20 MILLIGRAM
     Route: 048
     Dates: start: 20161010, end: 20161024
  7. ZOMETA [Concomitant]
     Active Substance: ZOLEDRONIC ACID
     Indication: PLASMA CELL MYELOMA
     Dosage: 4 MILLIGRAM
     Route: 041
     Dates: start: 20160919, end: 20160919
  8. ZOMETA [Concomitant]
     Active Substance: ZOLEDRONIC ACID
     Indication: HYPERCALCAEMIA
     Dosage: 4 MILLIGRAM
     Route: 041
     Dates: start: 20161024, end: 20161024
  9. LENADEX [Suspect]
     Active Substance: DEXAMETHASONE ACETATE
     Indication: PLASMA CELL MYELOMA
     Dosage: UNKNOWN
     Route: 048
     Dates: start: 20160908, end: 20161101
  10. ZOMETA [Concomitant]
     Active Substance: ZOLEDRONIC ACID
     Route: 065
     Dates: start: 20170405
  11. ASPARA K [Concomitant]
     Active Substance: POTASSIUM ASPARTATE
     Indication: HYPOKALAEMIA
     Dosage: 600 MILLIGRAM
     Route: 048
     Dates: start: 20160907, end: 20161010
  12. JANUVIA [Concomitant]
     Active Substance: SITAGLIPTIN PHOSPHATE
     Indication: DIABETES MELLITUS
     Dosage: 50 MILLIGRAM
     Route: 048
     Dates: start: 20160421
  13. EDIROL [Concomitant]
     Active Substance: ELDECALCITOL
     Indication: OSTEOPOROSIS
     Dosage: 0.75 MILLIGRAM
     Route: 048
     Dates: start: 20160413, end: 20161112
  14. THIAMAZOLE [Concomitant]
     Active Substance: METHIMAZOLE
     Indication: HYPERTHYROIDISM
     Route: 065
  15. ELCITONIN [Concomitant]
     Active Substance: ELCATONIN
     Indication: HYPERCALCAEMIA
     Route: 065
     Dates: start: 20170405

REACTIONS (6)
  - Deep vein thrombosis [Recovering/Resolving]
  - Asthenia [Recovering/Resolving]
  - Anaemia [Not Recovered/Not Resolved]
  - Urinary tract infection [Not Recovered/Not Resolved]
  - Dysuria [Recovering/Resolving]
  - Plasma cell myeloma [Unknown]

NARRATIVE: CASE EVENT DATE: 20161027
